FAERS Safety Report 4753700-8 (Version None)
Quarter: 2005Q3

REPORT INFORMATION
  Report Type: 
  Country: None (occurrence: None)
  Receive Date: 20050823
  Receipt Date: 20050601
  Transmission Date: 20060218
  Serious: No
  Sender: FDA-Public Use
  Company Number: 214960

PATIENT
  Age: 33 Year
  Sex: Female

DRUGS (2)
  1. RAPTIVA [Suspect]
     Indication: PSORIASIS
     Dosage: 0.8 ML, 1/WEEK, SUBCUTANEOUS
     Route: 058
     Dates: start: 20050101
  2. ENBREL [Concomitant]

REACTIONS (1)
  - ARTHRALGIA [None]
